FAERS Safety Report 5761400-0 (Version None)
Quarter: 2008Q2

REPORT INFORMATION
  Report Type: 
  Country: None (occurrence: None)
  Receive Date: 20080606
  Receipt Date: 20080527
  Transmission Date: 20081010
  Serious: Yes (Hospitalization)
  Sender: FDA-Public Use
  Company Number: JP-SANOFI-SYNTHELABO-A01200713042

PATIENT
  Age: 1136 Month
  Sex: Male

DRUGS (15)
  1. LANSOPRAZOLE [Concomitant]
     Indication: GASTRITIS PROPHYLAXIS
     Route: 048
     Dates: start: 20070705, end: 20071030
  2. AZULFIDINE EN-TABS [Concomitant]
     Indication: RHEUMATOID ARTHRITIS
     Route: 048
     Dates: start: 20061012, end: 20061110
  3. ALFAROL [Concomitant]
     Indication: DRUG USE FOR UNKNOWN INDICATION
     Dosage: UNK
     Route: 065
  4. METAPASS [Concomitant]
     Indication: DRUG USE FOR UNKNOWN INDICATION
     Dosage: UNK
     Route: 065
  5. JUVELA N [Concomitant]
     Indication: DRUG USE FOR UNKNOWN INDICATION
     Dosage: UNK
     Route: 065
  6. NEUROVITAN [Concomitant]
     Indication: DRUG USE FOR UNKNOWN INDICATION
     Dosage: UNK
     Route: 065
  7. PREDNISOLONE [Concomitant]
     Indication: RHEUMATOID ARTHRITIS
     Route: 048
     Dates: start: 20060718, end: 20071002
  8. PREDNISOLONE [Concomitant]
     Route: 048
     Dates: start: 20070705
  9. GASUISAN [Concomitant]
     Indication: DRUG USE FOR UNKNOWN INDICATION
     Dosage: UNK
     Route: 065
  10. URINORM [Concomitant]
     Indication: DRUG USE FOR UNKNOWN INDICATION
     Dosage: UNK
     Route: 065
  11. PROGRAF [Concomitant]
     Indication: RHEUMATOID ARTHRITIS
     Route: 048
     Dates: start: 20070417, end: 20070605
  12. PROGRAF [Concomitant]
     Route: 048
     Dates: start: 20070606, end: 20071001
  13. PROGRAF [Concomitant]
     Route: 048
     Dates: start: 20071002, end: 20071030
  14. CELECOXIB [Concomitant]
     Indication: DRUG USE FOR UNKNOWN INDICATION
     Dosage: UNK
     Route: 048
     Dates: start: 20070727, end: 20070928
  15. MYSLEE [Suspect]
     Indication: INSOMNIA
     Dosage: 5 MG
     Route: 048
     Dates: start: 20070705, end: 20071030

REACTIONS (1)
  - HEPATIC FUNCTION ABNORMAL [None]
